FAERS Safety Report 4897886-3 (Version None)
Quarter: 2006Q1

REPORT INFORMATION
  Report Type: 
  Country: None (occurrence: None)
  Receive Date: 20060130
  Receipt Date: 20060110
  Transmission Date: 20060701
  Serious: Yes (Death, Other)
  Sender: FDA-Public Use
  Company Number: DSA_26577_2005

PATIENT
  Age: 72 Year
  Sex: Female
  Weight: 64.8644 kg

DRUGS (3)
  1. LORAZEPAM [Suspect]
     Indication: SLEEP DISORDER
     Dosage: 2 MG QHS PO
     Route: 048
     Dates: start: 19860101, end: 20030101
  2. TIAZAC [Concomitant]
  3. RISPERDAL [Concomitant]

REACTIONS (8)
  - ABNORMAL BEHAVIOUR [None]
  - AMNESIA [None]
  - APHASIA [None]
  - ARTHRALGIA [None]
  - BRAIN DAMAGE [None]
  - CEREBROVASCULAR ACCIDENT [None]
  - HEADACHE [None]
  - NERVOUS SYSTEM DISORDER [None]
